FAERS Safety Report 8564649-7 (Version None)
Quarter: 2012Q3

REPORT INFORMATION
  Report Type: 
  Country: None (occurrence: None)
  Receive Date: 20120803
  Receipt Date: 20120726
  Transmission Date: 20120928
  Serious: Yes (Life-Threatening)
  Sender: FDA-Public Use
  Company Number: JP-JNJFOC-20120800492

PATIENT
  Sex: Male
  Weight: 50 kg

DRUGS (8)
  1. REMICADE [Suspect]
     Route: 042
     Dates: start: 20120222
  2. FAMOTIDINE [Concomitant]
     Indication: GASTROINTESTINAL DISORDER THERAPY
     Route: 065
  3. PENTASA [Concomitant]
     Indication: CROHN'S DISEASE
     Route: 065
  4. HUMIRA [Concomitant]
     Indication: CROHN'S DISEASE
     Route: 065
     Dates: start: 20120401
  5. REMICADE [Suspect]
     Indication: CROHN'S DISEASE
     Route: 042
     Dates: start: 20050909
  6. SULFASALAZINE [Concomitant]
     Indication: CROHN'S DISEASE
     Route: 065
  7. REMICADE [Suspect]
     Route: 042
     Dates: start: 20031127
  8. REMICADE [Suspect]
     Route: 042
     Dates: start: 20110907

REACTIONS (1)
  - MALIGNANT ANORECTAL NEOPLASM [None]
